FAERS Safety Report 9840610 (Version 3)
Quarter: 2014Q1

REPORT INFORMATION
  Report Type: Spontaneous
  Country: US (occurrence: US)
  Receive Date: 20140124
  Receipt Date: 20140319
  Transmission Date: 20141002
  Serious: Yes (Death)
  Sender: FDA-Public Use
  Company Number: US-PFIZER INC-2014021132

PATIENT
  Age: 80 Year
  Sex: Male

DRUGS (1)
  1. SUTENT [Suspect]
     Indication: RENAL CELL CARCINOMA
     Dosage: 37.5 MG, CYCLIC (QD 3WKS ON, 1 WK OFF)
     Route: 048
     Dates: start: 20131219, end: 201401

REACTIONS (2)
  - Disease progression [Fatal]
  - Renal cancer [Fatal]
